FAERS Safety Report 8017029-7 (Version None)
Quarter: 2012Q1

REPORT INFORMATION
  Report Type: 
  Country: None (occurrence: None)
  Receive Date: 20120102
  Receipt Date: 20111228
  Transmission Date: 20120608
  Serious: Yes (Hospitalization, Other)
  Sender: FDA-Public Use
  Company Number: PHEH2011US010781

PATIENT
  Sex: Female

DRUGS (4)
  1. EXJADE [Suspect]
     Indication: IRON OVERLOAD
     Dosage: 2000 MG QD
     Route: 048
  2. EXJADE [Suspect]
     Dosage: 1000 MG, DAILY
     Route: 048
     Dates: start: 20111107, end: 20111129
  3. EXJADE [Suspect]
     Dosage: 500 MG, DAILY
     Route: 048
     Dates: start: 20111129, end: 20111202
  4. REVLIMID [Concomitant]
     Dosage: 5 MG

REACTIONS (10)
  - ABDOMINAL PAIN [None]
  - MALAISE [None]
  - DYSPNOEA [None]
  - NERVOUSNESS [None]
  - RENAL PAIN [None]
  - FATIGUE [None]
  - ABDOMINAL DISCOMFORT [None]
  - ABDOMINAL PAIN UPPER [None]
  - RASH GENERALISED [None]
  - DIARRHOEA [None]
